FAERS Safety Report 18992833 (Version 3)
Quarter: 2022Q4

REPORT INFORMATION
  Report Type: Report from Study
  Country: CA (occurrence: CA)
  Receive Date: 20210310
  Receipt Date: 20221229
  Transmission Date: 20230113
  Serious: Yes (Other)
  Sender: FDA-Public Use
  Company Number: CA-TAKEDA-2021TUS006686

PATIENT
  Age: 61 Year
  Sex: Male

DRUGS (4)
  1. BRIGATINIB [Suspect]
     Active Substance: BRIGATINIB
     Indication: Non-small cell lung cancer
     Dosage: 90 MILLIGRAM, QD
     Route: 048
     Dates: start: 20210126
  2. BRIGATINIB [Suspect]
     Active Substance: BRIGATINIB
     Dosage: 180 MILLIGRAM, QD
     Route: 048
  3. BRIGATINIB [Suspect]
     Active Substance: BRIGATINIB
     Dosage: 180 MILLIGRAM
     Route: 048
     Dates: start: 20210219
  4. BRIGATINIB [Suspect]
     Active Substance: BRIGATINIB
     Dosage: UNK
     Route: 048
     Dates: start: 202109

REACTIONS (7)
  - Pleural effusion [Unknown]
  - Chest pain [Recovering/Resolving]
  - Back pain [Recovering/Resolving]
  - Tumour marker increased [Unknown]
  - Muscle spasms [Unknown]
  - Drug ineffective [Unknown]
  - Off label use [Unknown]
